FAERS Safety Report 7219561-2 (Version None)
Quarter: 2011Q1

REPORT INFORMATION
  Report Type: 
  Country: None (occurrence: None)
  Receive Date: 20110111
  Receipt Date: 20110103
  Transmission Date: 20110831
  Serious: Yes (Hospitalization)
  Sender: FDA-Public Use
  Company Number: BR-MEDIMMUNE-MEDI-0011592

PATIENT
  Sex: Female

DRUGS (2)
  1. SYNAGIS [Suspect]
     Dates: start: 20100401, end: 20100801
  2. SYNAGIS [Suspect]
     Indication: LUNG DISORDER

REACTIONS (3)
  - BRONCHIOLITIS [None]
  - PNEUMONIA [None]
  - FATIGUE [None]
